FAERS Safety Report 5955111-6 (Version None)
Quarter: 2008Q4

REPORT INFORMATION
  Report Type: 
  Country: None (occurrence: None)
  Receive Date: 20081117
  Receipt Date: 20081114
  Transmission Date: 20090506
  Serious: Yes (Death, Hospitalization)
  Sender: FDA-Public Use
  Company Number: DE-BAYER-200610721BVD

PATIENT
  Age: 63 Year
  Sex: Male

DRUGS (1)
  1. SORAFENIB [Suspect]
     Indication: RENAL CELL CARCINOMA
     Dosage: TOTAL DAILY DOSE: 800 MG  UNIT DOSE: 400 MG
     Route: 048
     Dates: start: 20051215, end: 20060522

REACTIONS (2)
  - CARDIAC ARREST [None]
  - GASTROINTESTINAL ULCER [None]
